FAERS Safety Report 13340994 (Version 6)
Quarter: 2017Q4

REPORT INFORMATION
  Report Type: Spontaneous
  Country: JP (occurrence: JP)
  Receive Date: 20170316
  Receipt Date: 20171113
  Transmission Date: 20180320
  Serious: Yes (Hospitalization, Congenital Anomaly, Other)
  Sender: FDA-Public Use
  Company Number: JP-ASTRAZENECA-2017SE27254

PATIENT
  Age: 0 Day
  Sex: Female
  Weight: 2.4 kg

DRUGS (5)
  1. SEROQUEL [Suspect]
     Active Substance: QUETIAPINE FUMARATE
     Indication: FOETAL EXPOSURE DURING PREGNANCY
     Route: 064
     Dates: start: 2016, end: 20170227
  2. SEPAMIT-R [Concomitant]
     Active Substance: NIFEDIPINE
     Route: 064
     Dates: start: 20170225, end: 20170227
  3. NIFEDIPINE. [Concomitant]
     Active Substance: NIFEDIPINE
     Dates: start: 20170227, end: 20170227
  4. LONASEN [Suspect]
     Active Substance: BLONANSERIN
     Indication: FOETAL EXPOSURE DURING PREGNANCY
     Route: 064
     Dates: start: 2016, end: 20170227
  5. ATONIN-O [Concomitant]
     Active Substance: OXYTOCIN
     Dates: start: 20170227, end: 20170227

REACTIONS (2)
  - Ventricular septal defect [Not Recovered/Not Resolved]
  - Transient tachypnoea of the newborn [Not Recovered/Not Resolved]

NARRATIVE: CASE EVENT DATE: 20170227
